FAERS Safety Report 4523612-3 (Version None)
Quarter: 2004Q4

REPORT INFORMATION
  Report Type: 
  Country: None (occurrence: None)
  Receive Date: 20041210
  Receipt Date: 20041206
  Transmission Date: 20050328
  Serious: Yes (Death)
  Sender: FDA-Public Use
  Company Number: PHBS2004TR16442

PATIENT
  Age: 54 Year
  Sex: Female

DRUGS (2)
  1. CORTICOSTEROIDS FOR SYSTEMIC USE [Suspect]
  2. CYCLOSPORINE [Suspect]
     Indication: PSORIASIS
     Dosage: UNK, UNK

REACTIONS (1)
  - MYCOSIS FUNGOIDES [None]
